FAERS Safety Report 8932723 (Version 1)
Quarter: 2012Q4

REPORT INFORMATION
  Report Type: 
  Country: FR (occurrence: FR)
  Receive Date: 20121129
  Receipt Date: 20121129
  Transmission Date: 20130627
  Serious: Yes (Hospitalization)
  Sender: FDA-Public Use
  Company Number: FR-MERCK-1211FRA011958

PATIENT
  Sex: Male

DRUGS (2)
  1. JANUVIA [Suspect]
     Dosage: UNK
     Route: 048
     Dates: start: 2009, end: 2009
  2. JANUVIA [Suspect]
     Dosage: UNK

REACTIONS (2)
  - Burning sensation [Unknown]
  - Hospitalisation [Recovered/Resolved]
